FAERS Safety Report 8261084-6 (Version None)
Quarter: 2012Q2

REPORT INFORMATION
  Report Type: 
  Country: None (occurrence: None)
  Receive Date: 20120405
  Receipt Date: 20120329
  Transmission Date: 20120825
  Serious: Yes (Other)
  Sender: FDA-Public Use
  Company Number: PHHY2012CA016779

PATIENT
  Sex: Female

DRUGS (4)
  1. ENTOCORT EC [Concomitant]
     Indication: COLITIS MICROSCOPIC
     Dosage: 2 DF, QD
  2. MICARDIS [Concomitant]
     Indication: BLOOD PRESSURE INCREASED
     Dosage: 40 MG, QD
  3. PANTOPRAZOLE [Concomitant]
     Indication: GASTRITIS
     Dosage: 40 MG, QD
  4. ZOLEDRONOC ACID [Suspect]
     Indication: OSTEOPOROSIS
     Dosage: 5 MG/100ML
     Route: 042
     Dates: start: 20120123

REACTIONS (5)
  - SYNCOPE [None]
  - DIZZINESS [None]
  - ASTHENIA [None]
  - PSYCHOMOTOR HYPERACTIVITY [None]
  - DEHYDRATION [None]
